FAERS Safety Report 18936758 (Version 1)
Quarter: 2021Q1

REPORT INFORMATION
  Report Type: Spontaneous
  Country: PT (occurrence: PT)
  Receive Date: 20210225
  Receipt Date: 20210225
  Transmission Date: 20210420
  Serious: Yes (Other)
  Sender: FDA-Public Use
  Company Number: PT-TEVA-2021-PT-1882291

PATIENT
  Age: 51 Year
  Sex: Female

DRUGS (6)
  1. FLUOROURACIL. [Suspect]
     Active Substance: FLUOROURACIL
     Indication: INVASIVE PAPILLARY BREAST CARCINOMA
     Dosage: ADMINISTERED 6 CYCLES
     Route: 065
  2. EPIRUBICIN [Suspect]
     Active Substance: EPIRUBICIN
     Indication: INVASIVE PAPILLARY BREAST CARCINOMA
     Dosage: ADMINISTERED 6 CYCLES
     Route: 065
  3. CARBOPLATIN. [Suspect]
     Active Substance: CARBOPLATIN
     Indication: INVASIVE PAPILLARY BREAST CARCINOMA
     Dosage: DOSE: AUC 6; ADMINISTERED 3 CYCLES
     Route: 065
  4. DOCETAXEL. [Suspect]
     Active Substance: DOCETAXEL
     Indication: INVASIVE PAPILLARY BREAST CARCINOMA
     Dosage: ADMINISTERED 3 CYCLES
     Route: 065
  5. LIPOSOMAL DOXORUBICIN [Suspect]
     Active Substance: DOXORUBICIN HYDROCHLORIDE
     Indication: INVASIVE PAPILLARY BREAST CARCINOMA
     Dosage: PALLIATIVE THERAPY ADMINISTERED ONLY 1 CYCLE
     Route: 065
  6. CYCLOPHOSPHAMIDE. [Suspect]
     Active Substance: CYCLOPHOSPHAMIDE
     Indication: INVASIVE PAPILLARY BREAST CARCINOMA
     Dosage: ADMINISTERED 6 CYCLES
     Route: 065

REACTIONS (4)
  - Treatment failure [Unknown]
  - Haematotoxicity [Unknown]
  - Off label use [Unknown]
  - Neutropenia [Unknown]
